FAERS Safety Report 8149274 (Version 2)
Quarter: 2014Q4

REPORT INFORMATION
  Report Type: Spontaneous
  Country: US (occurrence: US)
  Receive Date: 20110922
  Receipt Date: 20141223
  Transmission Date: 20150529
  Serious: Yes (Other)
  Sender: FDA-Public Use
  Company Number: US-ASTRAZENECA-2010SE59320

PATIENT
  Age: 879 Month
  Sex: Male
  Weight: 103.4 kg

DRUGS (50)
  1. SEROQUEL [Suspect]
     Active Substance: QUETIAPINE FUMARATE
     Indication: SLEEP DISORDER
     Route: 048
     Dates: start: 20101115, end: 20101116
  2. TRIAMCINOLONE [Concomitant]
     Active Substance: TRIAMCINOLONE
     Indication: STOMA CARE
     Route: 061
     Dates: start: 2014
  3. BROVANA [Concomitant]
     Active Substance: ARFORMOTEROL TARTRATE
     Indication: CHRONIC OBSTRUCTIVE PULMONARY DISEASE
     Route: 048
     Dates: start: 2014
  4. ACETAMINOPHEN. [Concomitant]
     Active Substance: ACETAMINOPHEN
     Indication: ARTHRALGIA
     Route: 048
     Dates: start: 2014
  5. VITAMIN B12 [Concomitant]
     Active Substance: CYANOCOBALAMIN
     Indication: ANAEMIA
     Dosage: MONTH
     Route: 058
     Dates: start: 2013
  6. SEROQUEL [Interacting]
     Active Substance: QUETIAPINE FUMARATE
     Indication: AKINESIA
     Route: 048
     Dates: start: 20101115, end: 20101116
  7. SEROQUEL [Interacting]
     Active Substance: QUETIAPINE FUMARATE
     Indication: AKINESIA
     Route: 048
     Dates: start: 201211
  8. METOPROLOL SUCCINATE. [Suspect]
     Active Substance: METOPROLOL SUCCINATE
     Indication: TACHYCARDIA
     Route: 048
     Dates: start: 20140922, end: 20141016
  9. OMEPRAZOLE. [Suspect]
     Active Substance: OMEPRAZOLE
     Indication: GASTROINTESTINAL HAEMORRHAGE
     Route: 048
     Dates: start: 2010
  10. AMLODIPINE [Concomitant]
     Active Substance: AMLODIPINE BESYLATE
     Indication: HYPERTENSION
     Dates: end: 20140930
  11. VITAMIN C [Concomitant]
     Active Substance: ASCORBIC ACID
     Indication: VITAMIN SUPPLEMENTATION
     Route: 048
     Dates: start: 2010
  12. MIRILAX1 [Concomitant]
     Indication: CONSTIPATION
     Route: 048
     Dates: start: 2010
  13. SEROQUEL [Interacting]
     Active Substance: QUETIAPINE FUMARATE
     Indication: SLEEP DISORDER
     Route: 048
     Dates: start: 20101214
  14. SEROQUEL [Interacting]
     Active Substance: QUETIAPINE FUMARATE
     Indication: AKINESIA
     Route: 048
     Dates: start: 201012
  15. SEROQUEL [Interacting]
     Active Substance: QUETIAPINE FUMARATE
     Indication: SLEEP DISORDER
     Route: 048
     Dates: start: 201211
  16. SEROQUEL [Interacting]
     Active Substance: QUETIAPINE FUMARATE
     Indication: SLEEP DISORDER
     Route: 048
     Dates: start: 201411, end: 201411
  17. BUDESONIDE. [Suspect]
     Active Substance: BUDESONIDE
     Indication: CHRONIC OBSTRUCTIVE PULMONARY DISEASE
     Route: 055
     Dates: start: 201406
  18. REQUIP [Interacting]
     Active Substance: ROPINIROLE HYDROCHLORIDE
     Indication: RESTLESS LEGS SYNDROME
     Route: 065
     Dates: start: 20071130, end: 20101107
  19. METFORMIN [Concomitant]
     Active Substance: METFORMIN HYDROCHLORIDE
     Indication: DIABETES MELLITUS
     Route: 048
     Dates: start: 2012
  20. ASPIRIN. [Concomitant]
     Active Substance: ASPIRIN
     Indication: CORONARY ARTERY DISEASE
     Dosage: 81MG, TWIK
     Route: 048
     Dates: start: 201401
  21. CRANBERRY. [Concomitant]
     Active Substance: CRANBERRY
     Indication: URINARY TRACT DISORDER
     Route: 048
     Dates: start: 2013
  22. ALBUTEROL SULFATE. [Concomitant]
     Active Substance: ALBUTEROL SULFATE
     Indication: INHALATION THERAPY
     Route: 055
     Dates: start: 201412
  23. SEROQUEL [Interacting]
     Active Substance: QUETIAPINE FUMARATE
     Indication: AKINESIA
     Route: 048
     Dates: start: 20101130, end: 201012
  24. SEROQUEL [Interacting]
     Active Substance: QUETIAPINE FUMARATE
     Indication: AKINESIA
     Route: 048
     Dates: start: 20120717
  25. SEROQUEL [Interacting]
     Active Substance: QUETIAPINE FUMARATE
     Indication: SLEEP DISORDER
     Route: 048
     Dates: start: 201410
  26. ATORVASTATIN [Concomitant]
     Active Substance: ATORVASTATIN
     Indication: BLOOD CHOLESTEROL ABNORMAL
     Route: 048
     Dates: start: 2013
  27. PROBIOTIC 10 BILLION CFU [Concomitant]
     Indication: GASTRIC DISORDER
     Route: 048
     Dates: start: 2013
  28. COSAMIN DS [Concomitant]
     Indication: ARTHROPATHY
     Route: 048
     Dates: start: 2013
  29. HYDROCORTISONE. [Concomitant]
     Active Substance: HYDROCORTISONE
     Indication: RECTAL HAEMORRHAGE
     Route: 054
     Dates: start: 2010
  30. SEROQUEL [Interacting]
     Active Substance: QUETIAPINE FUMARATE
     Indication: AKINESIA
     Route: 048
     Dates: start: 20101214
  31. METOPROLOL SUCCINATE. [Suspect]
     Active Substance: METOPROLOL SUCCINATE
     Indication: TACHYCARDIA
     Route: 048
     Dates: start: 20141016, end: 20141024
  32. K PHOS [Concomitant]
     Indication: UROSTOMY
     Route: 048
  33. SIMVASTATIN. [Concomitant]
     Active Substance: SIMVASTATIN
     Indication: BLOOD CHOLESTEROL ABNORMAL
     Route: 048
     Dates: start: 2010, end: 2013
  34. AMLODIPINE [Concomitant]
     Active Substance: AMLODIPINE BESYLATE
     Indication: HYPERTENSION
     Route: 048
     Dates: start: 20141024
  35. LOSARTAN KCL [Concomitant]
     Indication: HYPERTENSION
  36. METFORMIN [Concomitant]
     Active Substance: METFORMIN HYDROCHLORIDE
     Indication: DIABETES MELLITUS
  37. IRON [Concomitant]
     Active Substance: IRON
     Indication: HAEMOGLOBIN
     Route: 048
     Dates: start: 2010
  38. COLACE [Concomitant]
     Active Substance: DOCUSATE SODIUM
     Indication: ABNORMAL FAECES
     Route: 048
     Dates: start: 2010
  39. SEROQUEL [Interacting]
     Active Substance: QUETIAPINE FUMARATE
     Indication: SLEEP DISORDER
     Route: 048
     Dates: start: 20101130, end: 201012
  40. SEROQUEL [Interacting]
     Active Substance: QUETIAPINE FUMARATE
     Indication: SLEEP DISORDER
     Route: 048
     Dates: start: 201012
  41. SEROQUEL [Interacting]
     Active Substance: QUETIAPINE FUMARATE
     Indication: AKINESIA
     Route: 048
     Dates: start: 201411, end: 201411
  42. AMLODIPINE [Concomitant]
     Active Substance: AMLODIPINE BESYLATE
     Indication: HYPERTENSION
     Route: 048
     Dates: start: 20140930, end: 20141024
  43. METHADONE [Concomitant]
     Active Substance: METHADONE HYDROCHLORIDE
     Indication: DRUG WITHDRAWAL SYNDROME
  44. BENIFIBER [Concomitant]
     Indication: CONSTIPATION
     Route: 048
     Dates: start: 2010
  45. NYSTATIN. [Concomitant]
     Active Substance: NYSTATIN
     Indication: STOMA CARE
     Route: 061
     Dates: start: 2014
  46. SEROQUEL [Interacting]
     Active Substance: QUETIAPINE FUMARATE
     Indication: SLEEP DISORDER
     Route: 048
     Dates: start: 20120717
  47. SEROQUEL [Interacting]
     Active Substance: QUETIAPINE FUMARATE
     Indication: AKINESIA
     Route: 048
     Dates: start: 201410
  48. OMEGA GUARD [Concomitant]
     Indication: CARDIAC DISORDER
     Route: 048
     Dates: start: 2010
  49. OSTEO MATRIX [Concomitant]
     Indication: BONE DISORDER
     Route: 048
     Dates: start: 2010
  50. DULCOLAX [Concomitant]
     Active Substance: BISACODYL OR DOCUSATE SODIUM
     Indication: CONSTIPATION
     Route: 054
     Dates: start: 2014

REACTIONS (26)
  - Drug interaction [Unknown]
  - Head injury [Recovered/Resolved]
  - Sleep apnoea syndrome [Unknown]
  - Asthma [Unknown]
  - Sedation [Not Recovered/Not Resolved]
  - Urinary tract infection [Recovering/Resolving]
  - Coronary artery disease [Unknown]
  - Heart rate increased [Unknown]
  - Restlessness [Unknown]
  - Fatigue [Unknown]
  - Loss of consciousness [Unknown]
  - Orthostatic hypotension [Unknown]
  - Hallucination [Recovering/Resolving]
  - Agitation [Unknown]
  - Chest discomfort [Unknown]
  - Bladder disorder [Unknown]
  - Dyskinesia [Unknown]
  - Fall [Recovered/Resolved]
  - Muscular weakness [Unknown]
  - Restless legs syndrome [Unknown]
  - Dyskinesia [Unknown]
  - Hypersomnia [Unknown]
  - Chronic obstructive pulmonary disease [Unknown]
  - Psychotic disorder [Unknown]
  - Tachycardia [Unknown]
  - Off label use [Unknown]

NARRATIVE: CASE EVENT DATE: 201001
